FAERS Safety Report 10635872 (Version 2)
Quarter: 2015Q1

REPORT INFORMATION
  Report Type: Spontaneous
  Country: BR (occurrence: BR)
  Receive Date: 20141205
  Receipt Date: 20150219
  Transmission Date: 20150720
  Serious: Yes (Hospitalization)
  Sender: FDA-Public Use
  Company Number: PHHY2014BR157185

PATIENT
  Sex: Female

DRUGS (1)
  1. SIMVASTATIN SANDOZ [Suspect]
     Active Substance: SIMVASTATIN
     Indication: BLOOD CHOLESTEROL
     Dosage: 1 DF, QD AT NIGHT
     Route: 048

REACTIONS (9)
  - Skin exfoliation [Unknown]
  - Joint swelling [Unknown]
  - Ear swelling [Unknown]
  - Pharyngeal oedema [Unknown]
  - Erythema [Unknown]
  - Abdominal distension [Unknown]
  - Pruritus [Unknown]
  - Headache [Unknown]
  - Throat tightness [Unknown]
